FAERS Safety Report 9108531 (Version 1)
Quarter: 2013Q1

REPORT INFORMATION
  Report Type: Spontaneous
  Country: PH (occurrence: PH)
  Receive Date: 20130222
  Receipt Date: 20130222
  Transmission Date: 20140127
  Serious: Yes (Death)
  Sender: FDA-Public Use
  Company Number: PH-009507513-1302PHL008411

PATIENT
  Age: 52 Year
  Sex: Male

DRUGS (1)
  1. HYZAAR [Suspect]
     Dosage: 1 DF, QD
     Route: 048

REACTIONS (1)
  - Cerebrovascular accident [Fatal]
